FAERS Safety Report 23972403 (Version 5)
Quarter: 2025Q1

REPORT INFORMATION
  Report Type: Spontaneous
  Country: US (occurrence: US)
  Receive Date: 20240613
  Receipt Date: 20250309
  Transmission Date: 20250409
  Serious: No
  Sender: SANOFI AVENTIS
  Company Number: US-SA-SAC20240606000232

PATIENT
  Age: 2 Year
  Sex: Female

DRUGS (1)
  1. DUPIXENT [Suspect]
     Active Substance: DUPILUMAB
     Indication: Dermatitis atopic
     Dosage: 200 MG, Q4W
     Route: 058
     Dates: start: 20240411

REACTIONS (15)
  - Loss of personal independence in daily activities [Unknown]
  - Arthropod bite [Unknown]
  - Head injury [Unknown]
  - Rash pruritic [Unknown]
  - Rash macular [Unknown]
  - Dry skin [Unknown]
  - Injection site bruising [Recovered/Resolved]
  - Eczema [Unknown]
  - Erythema [Unknown]
  - Pruritus [Unknown]
  - Skin haemorrhage [Unknown]
  - Scratch [Unknown]
  - Rash [Unknown]
  - Condition aggravated [Unknown]
  - Therapeutic response shortened [Unknown]

NARRATIVE: CASE EVENT DATE: 20240101
